FAERS Safety Report 24134301 (Version 1)
Quarter: 2024Q3

REPORT INFORMATION
  Report Type: Spontaneous
  Country: GB (occurrence: GB)
  Receive Date: 20240725
  Receipt Date: 20240725
  Transmission Date: 20241016
  Serious: Yes (Other)
  Sender: CHATTEM
  Company Number: GB-MHRA-TPP1481633C4750296YC1721297408139

PATIENT
  Age: 67 Year
  Sex: Female
  Weight: 68 kg

DRUGS (1)
  1. NASACORT ALLERGY 24HR [Suspect]
     Active Substance: TRIAMCINOLONE ACETONIDE
     Indication: Ill-defined disorder
     Dates: start: 20240406

REACTIONS (1)
  - Flushing [Recovering/Resolving]

NARRATIVE: CASE EVENT DATE: 20240406
